FAERS Safety Report 23410542 (Version 1)
Quarter: 2024Q1

REPORT INFORMATION
  Report Type: Spontaneous
  Country: DK (occurrence: DK)
  Receive Date: 20240117
  Receipt Date: 20240117
  Transmission Date: 20240409
  Serious: Yes (Other)
  Sender: FDA-Public Use
  Company Number: DK-BRISTOL-MYERS SQUIBB COMPANY-2023-189574

PATIENT
  Sex: Male

DRUGS (1)
  1. AZACITIDINE [Suspect]
     Active Substance: AZACITIDINE
     Indication: VEXAS syndrome
     Dosage: 100 MILLIGRAM/SQ. METER FOR 5 DAYS
     Route: 065

REACTIONS (6)
  - Escherichia bacteraemia [Unknown]
  - Herpes simplex reactivation [Unknown]
  - Bacterial infection [Unknown]
  - COVID-19 [Unknown]
  - Device related infection [Unknown]
  - Off label use [Unknown]
